FAERS Safety Report 7424483-8 (Version None)
Quarter: 2011Q2

REPORT INFORMATION
  Report Type: 
  Country: None (occurrence: None)
  Receive Date: 20110411
  Receipt Date: 20110330
  Transmission Date: 20111010
  Serious: Yes (Hospitalization, Other)
  Sender: FDA-Public Use
  Company Number: 2009SP023301

PATIENT
  Age: 31 Year
  Sex: Female
  Weight: 93.8946 kg

DRUGS (2)
  1. ACETAMINOPHEN [Concomitant]
  2. NUVARING [Suspect]
     Indication: CONTRACEPTION
     Dates: start: 20030201, end: 20070801

REACTIONS (29)
  - DEEP VEIN THROMBOSIS [None]
  - DYSPNOEA [None]
  - EYE INFECTION STAPHYLOCOCCAL [None]
  - HYPERTENSION [None]
  - CATARACT [None]
  - UVEITIS [None]
  - GASTRIC BANDING [None]
  - SPINAL OSTEOARTHRITIS [None]
  - FATIGUE [None]
  - NON-CARDIAC CHEST PAIN [None]
  - INTERNATIONAL NORMALISED RATIO DECREASED [None]
  - OSTEOARTHRITIS [None]
  - DILATATION VENTRICULAR [None]
  - OESOPHAGEAL DILATATION [None]
  - ALCOHOL USE [None]
  - NAUSEA [None]
  - PULMONARY EMBOLISM [None]
  - SLEEP APNOEA SYNDROME [None]
  - RHEUMATOID ARTHRITIS [None]
  - PROTHROMBIN TIME SHORTENED [None]
  - STRABISMUS [None]
  - REFRACTIVE AMBLYOPIA [None]
  - GASTROOESOPHAGEAL REFLUX DISEASE [None]
  - RENAL CYST [None]
  - MIGRAINE [None]
  - DEPRESSION [None]
  - OESOPHAGEAL ACHALASIA [None]
  - HYPERHOMOCYSTEINAEMIA [None]
  - IRON DEFICIENCY ANAEMIA [None]
